FAERS Safety Report 4502999-1 (Version None)
Quarter: 2004Q4

REPORT INFORMATION
  Report Type: 
  Country: None (occurrence: None)
  Receive Date: 20041116
  Receipt Date: 20041116
  Transmission Date: 20050328
  Serious: Yes (Disabling)
  Sender: FDA-Public Use
  Company Number: None

PATIENT
  Age: 56 Year
  Sex: Male
  Weight: 104.7809 kg

DRUGS (1)
  1. GENTAMICIN [Suspect]
     Indication: MENIERE'S DISEASE
     Dosage: 3 X A DAY   FOR 5 DAYS   VAGINAL
     Route: 067
     Dates: start: 19930901, end: 19991001

REACTIONS (6)
  - BALANCE DISORDER [None]
  - DIFFICULTY IN WALKING [None]
  - DIZZINESS [None]
  - ELECTRONYSTAGMOGRAM ABNORMAL [None]
  - FEELING DRUNK [None]
  - IMPAIRED DRIVING ABILITY [None]
